FAERS Safety Report 14941117 (Version 1)
Quarter: 2018Q2

REPORT INFORMATION
  Report Type: Spontaneous
  Country: ES (occurrence: ES)
  Receive Date: 20180525
  Receipt Date: 20180525
  Transmission Date: 20180711
  Serious: Yes (Life-Threatening, Other)
  Sender: FDA-Public Use
  Company Number: ES-009507513-1805ESP009709

PATIENT
  Sex: Female

DRUGS (1)
  1. BRIDION [Suspect]
     Active Substance: SUGAMMADEX
     Indication: NEUROMUSCULAR BLOCKADE REVERSAL
     Dosage: 2 MG/KG, ONCE
     Dates: start: 20180430, end: 20180430

REACTIONS (2)
  - Bronchospasm [Recovered/Resolved]
  - Endotracheal intubation [Unknown]

NARRATIVE: CASE EVENT DATE: 20180430
